FAERS Safety Report 8816794 (Version 1)
Quarter: 2012Q4

REPORT INFORMATION
  Report Type: Spontaneous
  Country: DK (occurrence: None)
  Receive Date: 20121001
  Receipt Date: 20121001
  Transmission Date: 20130627
  Serious: Yes (Other)
  Sender: FDA-Public Use
  Company Number: 2012MA011757

PATIENT
  Age: 56 Year
  Sex: Male

DRUGS (2)
  1. DICLOFENAC SODIUM [Suspect]
     Indication: GOUT FLARE
     Route: 048
     Dates: start: 2009, end: 20120906
  2. ALLOPURINOL [Concomitant]

REACTIONS (6)
  - Swelling face [None]
  - Dyspnoea [None]
  - Loss of consciousness [None]
  - Pruritus [None]
  - No reaction on previous exposure to drug [None]
  - Swollen tongue [None]
